FAERS Safety Report 8271632-8 (Version None)
Quarter: 2012Q2

REPORT INFORMATION
  Report Type: 
  Country: None (occurrence: None)
  Receive Date: 20120410
  Receipt Date: 20120404
  Transmission Date: 20120825
  Serious: Yes (Hospitalization)
  Sender: FDA-Public Use
  Company Number: US-GLAXOSMITHKLINE-A0972696A

PATIENT
  Age: 58 Year
  Sex: Female
  Weight: 110 kg

DRUGS (19)
  1. PIOGLITAZONE [Concomitant]
  2. BENZTROPINE MESYLATE [Concomitant]
     Route: 048
  3. CEPHALEXIN [Concomitant]
     Route: 048
  4. LORAZEPAM [Concomitant]
     Route: 048
  5. GEODON [Concomitant]
     Route: 048
  6. LISINOPRIL [Concomitant]
     Route: 048
  7. OXYBUTYNIN [Concomitant]
     Route: 048
  8. ATENOLOL [Concomitant]
     Route: 048
  9. AZITHROMYCIN [Concomitant]
     Route: 048
  10. ASPIRIN [Concomitant]
     Route: 048
  11. RISPERIDONE [Concomitant]
     Route: 048
  12. BUPROPION HCL [Concomitant]
     Route: 048
  13. LAMICTAL [Suspect]
     Indication: DEPRESSION
     Dosage: 150MG PER DAY
     Route: 048
  14. DILTIAZEM HCL [Concomitant]
     Route: 048
  15. GLUCOSAMINE [Concomitant]
     Route: 048
  16. HYDROXYZINE HCL [Concomitant]
     Route: 048
  17. SIMVASTATIN [Concomitant]
     Route: 048
  18. INVESTIGATIONAL STUDY DRUG [Concomitant]
     Indication: TYPE 2 DIABETES MELLITUS
     Route: 048
     Dates: start: 20101216
  19. METFORMIN HCL [Concomitant]

REACTIONS (14)
  - FALL [None]
  - DIZZINESS [None]
  - HAEMATOMA [None]
  - CEREBRAL ATROPHY [None]
  - GLOMERULAR FILTRATION RATE DECREASED [None]
  - ASTHENIA [None]
  - BLOOD GLUCOSE INCREASED [None]
  - VERTEBRAL FORAMINAL STENOSIS [None]
  - CONFUSIONAL STATE [None]
  - HEAD INJURY [None]
  - SOFT TISSUE DISORDER [None]
  - SKULL FRACTURE [None]
  - DRUG INTOLERANCE [None]
  - INTERVERTEBRAL DISC DEGENERATION [None]
